FAERS Safety Report 24578954 (Version 2)
Quarter: 2025Q1

REPORT INFORMATION
  Report Type: Report from Study
  Country: US (occurrence: US)
  Receive Date: 20241105
  Receipt Date: 20250210
  Transmission Date: 20250409
  Serious: Yes (Other)
  Sender: ABBVIE
  Company Number: US-ABBVIE-5986337

PATIENT
  Sex: Male

DRUGS (1)
  1. HUMIRA [Suspect]
     Active Substance: ADALIMUMAB
     Indication: Psoriasis
     Route: 058
     Dates: start: 20200911

REACTIONS (6)
  - Hip surgery [Unknown]
  - Exostosis [Unknown]
  - Peripheral swelling [Unknown]
  - Skin discolouration [Unknown]
  - Nephropathy [Unknown]
  - Post procedural complication [Unknown]
